FAERS Safety Report 5146607-8 (Version None)
Quarter: 2006Q4

REPORT INFORMATION
  Report Type: 
  Country: None (occurrence: None)
  Receive Date: 20061109
  Receipt Date: 20061103
  Transmission Date: 20070319
  Serious: Yes (Hospitalization, Other)
  Sender: FDA-Public Use
  Company Number: GB-BAYER-200611366BNE

PATIENT
  Age: 82 Year
  Sex: Female

DRUGS (10)
  1. ASPIRIN [Suspect]
     Route: 042
     Dates: end: 20061010
  2. DIDRONEL PMO [Suspect]
     Route: 048
     Dates: end: 20061010
  3. AMOXICILLIN [Concomitant]
     Dosage: AS USED: 1 G
     Route: 048
     Dates: start: 20061013
  4. ATENOLOL [Concomitant]
     Route: 048
  5. CLARITHROMYCIN [Concomitant]
     Dosage: AS USED: 500 MG
     Route: 048
     Dates: start: 20061013
  6. DOSULEPIN [Concomitant]
     Route: 048
  7. OMEPRAZOLE [Concomitant]
     Route: 048
     Dates: start: 20061013
  8. SENNA [Concomitant]
     Route: 048
  9. SIMVASTATIN [Concomitant]
     Route: 048
  10. STRONTIUM RANELATE [Concomitant]
     Route: 048
     Dates: start: 20061013

REACTIONS (5)
  - ABNORMAL FAECES [None]
  - GASTRIC ULCER [None]
  - HAEMOGLOBIN DECREASED [None]
  - LETHARGY [None]
  - MELAENA [None]
